FAERS Safety Report 11808054 (Version 1)
Quarter: 2015Q4

REPORT INFORMATION
  Report Type: Spontaneous
  Country: US (occurrence: US)
  Receive Date: 20151207
  Receipt Date: 20151207
  Transmission Date: 20160305
  Serious: No
  Sender: FDA-Public Use
  Company Number: US-ENDO PHARMACEUTICALS INC.-201502049

PATIENT
  Sex: Male
  Weight: 95.34 kg

DRUGS (8)
  1. METOPROLOL [Concomitant]
     Active Substance: METOPROLOL
  2. BYETTA [Concomitant]
     Active Substance: EXENATIDE
  3. TESTOSTERONE GEL [Suspect]
     Active Substance: TESTOSTERONE
     Dosage: 1 TO 2 TUBES DAILY
     Route: 062
  4. ATORVASTATIN [Concomitant]
     Active Substance: ATORVASTATIN
  5. PLAVIX [Concomitant]
     Active Substance: CLOPIDOGREL BISULFATE
  6. METFORMIN [Concomitant]
     Active Substance: METFORMIN HYDROCHLORIDE
  7. TELMISARTAN. [Concomitant]
     Active Substance: TELMISARTAN
  8. PANTOPRAZOLE [Concomitant]
     Active Substance: PANTOPRAZOLE SODIUM

REACTIONS (3)
  - Blood testosterone decreased [Unknown]
  - Drug ineffective [Unknown]
  - Incorrect product storage [Unknown]
